FAERS Safety Report 9508745 (Version 1)
Quarter: 2013Q1

REPORT INFORMATION
  Report Type: Spontaneous
  Country: US (occurrence: None)
  Receive Date: 20130305
  Receipt Date: 20130305
  Transmission Date: 20140127
  Serious: Yes (Other)
  Sender: FDA-Public Use
  Company Number: 163-21880-11041664

PATIENT
  Age: 89 Year
  Sex: Female
  Weight: 65.3 kg

DRUGS (10)
  1. REVLIMID (LENALIDOMIDE) (25 MILLIGRAM, CAPSULES) [Suspect]
     Indication: PLASMA CELL MYELOMA
     Dosage: 25 MG, 1 IN 1 D, PO
     Route: 048
     Dates: start: 200808
  2. PROCRIT [Concomitant]
  3. POTASSIUM CHLORIDE [Concomitant]
  4. DEXAMETHASONE [Concomitant]
  5. ZOMETA (ZOLEDRONIC ACID) [Concomitant]
  6. SIMVASTATIN [Concomitant]
  7. HYDROCHLOROTHIAZIDE [Concomitant]
  8. TYLENOL ES (PARACETAMOL) [Concomitant]
  9. SYNTHROID (LEVOTHYROXINE SODIUM) [Concomitant]
  10. DULCOLAX (BISACODYL) [Concomitant]

REACTIONS (3)
  - Fatigue [None]
  - Weight decreased [None]
  - Constipation [None]
